FAERS Safety Report 20196955 (Version 1)
Quarter: 2021Q4

REPORT INFORMATION
  Report Type: Spontaneous
  Country: US (occurrence: US)
  Receive Date: 20211217
  Receipt Date: 20211217
  Transmission Date: 20220303
  Serious: No
  Sender: FDA-Public Use
  Company Number: US-SANOFI-00889865

PATIENT
  Age: 75 Year
  Sex: Female

DRUGS (1)
  1. NASACORT ALLERGY 24HR [Suspect]
     Active Substance: TRIAMCINOLONE ACETONIDE
     Indication: Cough
     Dosage: UNK

REACTIONS (3)
  - Micturition disorder [Unknown]
  - Enuresis [Unknown]
  - Productive cough [Unknown]
